FAERS Safety Report 5696078-8 (Version None)
Quarter: 2008Q2

REPORT INFORMATION
  Report Type: 
  Country: None (occurrence: None)
  Receive Date: 20080407
  Receipt Date: 20080401
  Transmission Date: 20081010
  Serious: Yes (Hospitalization)
  Sender: FDA-Public Use
  Company Number: B0513762A

PATIENT
  Age: 78 Year
  Sex: Male

DRUGS (1)
  1. ARIXTRA [Suspect]
     Indication: KNEE ARTHROPLASTY
     Dosage: 2.5MG PER DAY
     Route: 058
     Dates: start: 20080307, end: 20080317

REACTIONS (2)
  - POST PROCEDURAL HAEMATOMA [None]
  - SWELLING [None]
